FAERS Safety Report 14348252 (Version 2)
Quarter: 2018Q1

REPORT INFORMATION
  Report Type: Report from Study
  Country: US (occurrence: US)
  Receive Date: 20180103
  Receipt Date: 20180228
  Transmission Date: 20180509
  Serious: Yes (Hospitalization)
  Sender: FDA-Public Use
  Company Number: US-TAKEDA-2017MPI012008

PATIENT
  Age: 39 Year
  Sex: Male
  Weight: 90.4 kg

DRUGS (17)
  1. ALDACTONE [Concomitant]
     Active Substance: SPIRONOLACTONE
     Dosage: UNK
     Route: 065
     Dates: start: 20171202
  2. CYCLOPHOSPHAMIDE. [Suspect]
     Active Substance: CYCLOPHOSPHAMIDE
     Indication: AMYLOIDOSIS
     Dosage: 500 MG, UNK
     Route: 048
     Dates: start: 20171115, end: 20171115
  3. ALDACTONE [Concomitant]
     Active Substance: SPIRONOLACTONE
     Indication: CARDIAC FAILURE
     Dosage: 25 MG, QD
     Route: 048
  4. DEMADEX [Concomitant]
     Active Substance: TORSEMIDE
     Dosage: UNK
     Dates: start: 20171203
  5. IXAZOMIB [Suspect]
     Active Substance: IXAZOMIB
     Indication: AMYLOIDOSIS
     Dosage: 4 MG, UNK
     Route: 048
     Dates: start: 20171108, end: 20171108
  6. DEMADEX [Concomitant]
     Active Substance: TORSEMIDE
     Dosage: 20 MG, BID
  7. XARELTO [Concomitant]
     Active Substance: RIVAROXABAN
  8. COMPAZINE                          /00013302/ [Concomitant]
     Active Substance: PROCHLORPERAZINE EDISYLATE
     Indication: NAUSEA
     Dosage: 10 MG, UNK
     Route: 048
  9. DEXAMETHASONE. [Suspect]
     Active Substance: DEXAMETHASONE
     Indication: AMYLOIDOSIS
     Dosage: 40 MG, UNK
     Route: 048
     Dates: start: 20171115, end: 20171115
  10. DEXAMETHASONE. [Suspect]
     Active Substance: DEXAMETHASONE
     Dosage: 20 MG, UNK
     Route: 065
     Dates: start: 20171204
  11. ACYCLOVIR                          /00587301/ [Concomitant]
     Active Substance: ACYCLOVIR
     Dosage: 400 MG, BID
     Route: 048
  12. PACERONE [Concomitant]
     Active Substance: AMIODARONE HYDROCHLORIDE
     Dosage: 200 MG, UNK
     Route: 048
  13. K-DUR [Concomitant]
     Active Substance: POTASSIUM CHLORIDE
     Dosage: 20 MEQ, QD
     Route: 048
  14. VELCADE [Suspect]
     Active Substance: BORTEZOMIB
     Indication: AMYLOIDOSIS
     Dosage: UNK
     Route: 058
     Dates: start: 20171204
  15. COMPAZINE                          /00013302/ [Concomitant]
     Active Substance: PROCHLORPERAZINE EDISYLATE
     Indication: VOMITING
  16. DARATUMUMAB [Suspect]
     Active Substance: DARATUMUMAB
     Indication: AMYLOIDOSIS
     Dosage: UNK
     Route: 065
     Dates: start: 20171204
  17. ZOFRAN [Concomitant]
     Active Substance: ONDANSETRON HYDROCHLORIDE
     Indication: NAUSEA
     Dosage: 8 MG, BID
     Route: 048

REACTIONS (3)
  - Pain [Recovered/Resolved]
  - Pyrexia [Recovered/Resolved]
  - Cough [Recovered/Resolved]

NARRATIVE: CASE EVENT DATE: 20171208
